FAERS Safety Report 9256358 (Version 2)
Quarter: 2015Q1

REPORT INFORMATION
  Report Type: Spontaneous
  Country: US (occurrence: US)
  Receive Date: 20130425
  Receipt Date: 20150126
  Transmission Date: 20150721
  Serious: No
  Sender: FDA-Public Use
  Company Number: US-ASTRAZENECA-2013SE23810

PATIENT
  Age: 68 Year
  Sex: Female
  Weight: 54.4 kg

DRUGS (6)
  1. COMBIVENT [Concomitant]
     Active Substance: ALBUTEROL SULFATE\IPRATROPIUM BROMIDE
     Indication: CHRONIC OBSTRUCTIVE PULMONARY DISEASE
     Route: 055
  2. LOSARTIN [Concomitant]
     Active Substance: LOSARTAN
     Indication: HYPERTENSION
     Route: 048
  3. ALBUTEROL. [Concomitant]
     Active Substance: ALBUTEROL
  4. SYMBICORT [Suspect]
     Active Substance: BUDESONIDE\FORMOTEROL FUMARATE DIHYDRATE
     Indication: ASTHMA
     Dosage: 160/4.5 2 PUFFS BID
     Route: 055
     Dates: start: 20111223, end: 20141123
  5. SYMBICORT [Suspect]
     Active Substance: BUDESONIDE\FORMOTEROL FUMARATE DIHYDRATE
     Indication: ASTHMA
     Dosage: EACH YEAR IN AUGUST REDUCES HER SYMBICORT USE TO UNKNOWN DOSE
     Route: 055
  6. HCTZ [Concomitant]
     Active Substance: HYDROCHLOROTHIAZIDE
     Indication: HYPERTENSION
     Route: 048

REACTIONS (4)
  - Tremor [Not Recovered/Not Resolved]
  - Dyspnoea [Unknown]
  - Drug dose omission [Unknown]
  - Intentional product misuse [Unknown]
